FAERS Safety Report 23696837 (Version 2)
Quarter: 2024Q2

REPORT INFORMATION
  Report Type: Spontaneous
  Country: PL (occurrence: PL)
  Receive Date: 20240402
  Receipt Date: 20240418
  Transmission Date: 20240716
  Serious: Yes (Hospitalization, Other)
  Sender: FDA-Public Use
  Company Number: PL-EMA-DD-20240322-7482663-093001

PATIENT
  Age: 52 Year
  Sex: Female

DRUGS (3)
  1. DOCETAXEL [Suspect]
     Active Substance: DOCETAXEL\DOCETAXEL ANHYDROUS
     Indication: HER2 positive breast cancer
     Dosage: UNK
     Dates: start: 2013
  2. CYCLOPHOSPHAMIDE [Suspect]
     Active Substance: CYCLOPHOSPHAMIDE
     Indication: HER2 positive breast cancer
     Dosage: UNK
     Dates: start: 2013
  3. DOXORUBICIN [Suspect]
     Active Substance: DOXORUBICIN
     Indication: HER2 positive breast cancer
     Dosage: UNK
     Dates: start: 2013

REACTIONS (7)
  - Myelodysplastic syndrome [Recovered/Resolved]
  - Second primary malignancy [Recovered/Resolved]
  - Thrombocytopenia [Recovered/Resolved]
  - Granulocytopenia [Recovered/Resolved]
  - Anaemia [Recovered/Resolved]
  - Bronchopulmonary aspergillosis [Unknown]
  - Cytomegalovirus infection [Unknown]

NARRATIVE: CASE EVENT DATE: 20140901
